FAERS Safety Report 25168109 (Version 6)
Quarter: 2025Q4

REPORT INFORMATION
  Report Type: Report from Study
  Country: US (occurrence: US)
  Receive Date: 20250407
  Receipt Date: 20251124
  Transmission Date: 20260118
  Serious: Yes (Hospitalization, Other)
  Sender: RHYTHM PHARMACEUTICALS
  Company Number: US-PPDUS-2023RHM000634

PATIENT
  Age: 9 Year
  Sex: Female

DRUGS (5)
  1. SETMELANOTIDE [Suspect]
     Active Substance: SETMELANOTIDE
     Indication: Laurence-Moon-Bardet-Biedl syndrome
     Dosage: UNK UNK , QD
     Route: 058
     Dates: start: 20221123
  2. SETMELANOTIDE [Suspect]
     Active Substance: SETMELANOTIDE
     Dosage: 3 MILLIGRAM (0.3 ML), QD
     Route: 058
  3. SETMELANOTIDE [Suspect]
     Active Substance: SETMELANOTIDE
     Dosage: UNK
     Route: 058
     Dates: start: 202510
  4. DIAZEPAM [Concomitant]
     Active Substance: DIAZEPAM
     Indication: Product used for unknown indication
  5. LACOSAMIDE [Concomitant]
     Active Substance: LACOSAMIDE
     Indication: Product used for unknown indication

REACTIONS (9)
  - Seizure [Not Recovered/Not Resolved]
  - Electrocardiogram QT prolonged [Not Recovered/Not Resolved]
  - Scoliosis [Recovering/Resolving]
  - Illness [Unknown]
  - Nasopharyngitis [Unknown]
  - Product dose omission in error [Recovered/Resolved]
  - Decreased appetite [Recovered/Resolved]
  - Gastroenteritis viral [Unknown]
  - COVID-19 [Unknown]

NARRATIVE: CASE EVENT DATE: 20231201
